FAERS Safety Report 13689919 (Version 1)
Quarter: 2017Q2

REPORT INFORMATION
  Report Type: Spontaneous
  Country: IL (occurrence: IL)
  Receive Date: 20170626
  Receipt Date: 20170626
  Transmission Date: 20170830
  Serious: Yes (Hospitalization, Other)
  Sender: FDA-Public Use
  Company Number: IL-PFIZER INC-2017267987

PATIENT
  Age: 83 Year
  Sex: Male

DRUGS (8)
  1. XALATAN [Suspect]
     Active Substance: LATANOPROST
     Indication: INTRAOCULAR PRESSURE INCREASED
  2. BENZOCAINE. [Concomitant]
     Active Substance: BENZOCAINE
     Dosage: UNK
     Dates: start: 20100815
  3. URAMOX [Concomitant]
     Active Substance: ACETAZOLAMIDE
     Dosage: UNK
     Dates: start: 20141203
  4. COLDEX /00020001/ [Concomitant]
     Dosage: UNK
     Dates: start: 20141203
  5. DOXYLIN /00055702/ [Concomitant]
     Active Substance: DOXYCYCLINE
     Dosage: UNK
     Dates: start: 20100712
  6. VASOPRIL /00574902/ [Concomitant]
     Dosage: UNK
     Dates: start: 20110411
  7. DIOVAN [Concomitant]
     Active Substance: VALSARTAN
     Dosage: UNK
     Dates: start: 20100712
  8. GLAUTAN [Concomitant]
     Dosage: UNK
     Dates: start: 20110411

REACTIONS (8)
  - Eye infection bacterial [Unknown]
  - Choroidal detachment [Unknown]
  - Exfoliation syndrome [Unknown]
  - Intraocular pressure decreased [Unknown]
  - Macular hole [Unknown]
  - Macular cyst [Unknown]
  - Endophthalmitis [Unknown]
  - Mydriasis [Unknown]
